FAERS Safety Report 9125942 (Version 2)
Quarter: 2013Q3

REPORT INFORMATION
  Report Type: Report from Study
  Country: US (occurrence: US)
  Receive Date: 20130121
  Receipt Date: 20130719
  Transmission Date: 20140515
  Serious: Yes (Hospitalization, Other)
  Sender: FDA-Public Use
  Company Number: US-ABBOTT-13P-163-1035359-00

PATIENT
  Age: 64 Year
  Sex: Female

DRUGS (23)
  1. HUMIRA [Suspect]
     Indication: CROHN^S DISEASE
  2. HUMIRA [Suspect]
     Indication: RHEUMATOID ARTHRITIS
  3. SYNTHROID [Concomitant]
     Indication: HYPOTHYROIDISM
     Route: 048
  4. PROBIOTICS [Concomitant]
     Indication: PRODUCT USED FOR UNKNOWN INDICATION
  5. DHEA [Concomitant]
     Indication: ALOPECIA
  6. EXFORGE [Concomitant]
     Indication: PRODUCT USED FOR UNKNOWN INDICATION
  7. PROZAC [Concomitant]
     Indication: PRODUCT USED FOR UNKNOWN INDICATION
  8. NUVIGIL [Concomitant]
     Indication: PRODUCT USED FOR UNKNOWN INDICATION
  9. ZANTAC [Concomitant]
     Indication: PRODUCT USED FOR UNKNOWN INDICATION
  10. VALIUM [Concomitant]
     Indication: PRODUCT USED FOR UNKNOWN INDICATION
  11. CALCIUM + VIT D [Concomitant]
     Indication: OSTEOPOROSIS
  12. VITAMIN B12 [Concomitant]
     Indication: PRODUCT USED FOR UNKNOWN INDICATION
  13. VITAMIN E [Concomitant]
     Indication: PRODUCT USED FOR UNKNOWN INDICATION
  14. TRICOR [Concomitant]
     Indication: BLOOD CHOLESTEROL
  15. ASPIRIN [Concomitant]
     Indication: PRODUCT USED FOR UNKNOWN INDICATION
  16. TOPAMAX [Concomitant]
     Indication: FIBROMYALGIA
     Dosage: IN AM
  17. ZETIA [Concomitant]
     Indication: BLOOD CHOLESTEROL
     Route: 048
  18. AMBIEN [Concomitant]
     Indication: PRODUCT USED FOR UNKNOWN INDICATION
  19. ALBUTEROL [Concomitant]
     Indication: PRODUCT USED FOR UNKNOWN INDICATION
  20. PERCOCET [Concomitant]
     Indication: PAIN
     Dosage: 1-2 TABS (HARDLY USES)
  21. TRIAMTERENE/HCTZ [Concomitant]
     Indication: HYPERTENSION
     Dosage: 37.5-25 MG
  22. VITAMIN D NOS [Concomitant]
     Indication: PRODUCT USED FOR UNKNOWN INDICATION
  23. RANTIDINE [Concomitant]
     Indication: GASTROOESOPHAGEAL REFLUX DISEASE

REACTIONS (9)
  - Intervertebral disc protrusion [Recovering/Resolving]
  - Intervertebral disc protrusion [Recovering/Resolving]
  - Vertebral osteophyte [Recovering/Resolving]
  - Back pain [Recovering/Resolving]
  - Sciatica [Unknown]
  - Mobility decreased [Recovering/Resolving]
  - Hypoaesthesia [Recovering/Resolving]
  - Inappropriate schedule of drug administration [Unknown]
  - Incorrect dose administered [Unknown]
